FAERS Safety Report 7028821-X (Version None)
Quarter: 2010Q4

REPORT INFORMATION
  Report Type: 
  Country: None (occurrence: None)
  Receive Date: 20101004
  Receipt Date: 20101004
  Transmission Date: 20110411
  Serious: No
  Sender: FDA-Public Use
  Company Number: None

PATIENT
  Age: 60 Year
  Sex: Female
  Weight: 58.9676 kg

DRUGS (1)
  1. CICLOPIROX [Suspect]
     Indication: ONYCHOMYCOSIS
     Dosage: 1 NIGHTLY TOP, THREE NIGHTS
     Route: 061
     Dates: start: 20100919, end: 20100921

REACTIONS (1)
  - APPLICATION SITE ANAESTHESIA [None]
